FAERS Safety Report 6998171-6 (Version None)
Quarter: 2010Q3

REPORT INFORMATION
  Report Type: 
  Country: None (occurrence: None)
  Receive Date: 20100920
  Receipt Date: 20091020
  Transmission Date: 20110219
  Serious: No
  Sender: FDA-Public Use
  Company Number: US-ASTRAZENECA-2009SE21319

PATIENT
  Age: 45 Year
  Sex: Male

DRUGS (5)
  1. SEROQUEL [Suspect]
     Indication: MAJOR DEPRESSION
     Route: 048
  2. CYMBALTA [Concomitant]
  3. WELLBUTRIN [Concomitant]
  4. DEPAKOTE (WEANING DOSE) [Concomitant]
  5. NORTRIPTALINE [Concomitant]

REACTIONS (1)
  - DRUG SCREEN POSITIVE [None]
